FAERS Safety Report 8083279-7 (Version None)
Quarter: 2012Q1

REPORT INFORMATION
  Report Type: 
  Country: None (occurrence: None)
  Receive Date: 20120127
  Receipt Date: 20110301
  Transmission Date: 20120608
  Serious: No
  Sender: FDA-Public Use
  Company Number: US-ABBOTT-11P-163-0709434-00

PATIENT
  Sex: Male
  Weight: 78.542 kg

DRUGS (6)
  1. HUMIRA [Suspect]
     Indication: PSORIASIS
     Route: 058
  2. IBUPROFEN (ADVIL) [Concomitant]
     Indication: PSORIATIC ARTHROPATHY
  3. ALBUTEROL [Concomitant]
     Indication: ASTHMA
     Dosage: PRN
  4. HUMIRA [Suspect]
     Indication: PSORIATIC ARTHROPATHY
  5. IBUPROFEN [Concomitant]
     Indication: PSORIATIC ARTHROPATHY
     Dosage: PRN
  6. PRAVASTATIN [Concomitant]
     Indication: PRODUCT USED FOR UNKNOWN INDICATION

REACTIONS (1)
  - UPPER RESPIRATORY TRACT IRRITATION [None]
